FAERS Safety Report 6585938-1 (Version None)
Quarter: 2010Q1

REPORT INFORMATION
  Report Type: 
  Country: None (occurrence: None)
  Receive Date: 20100217
  Receipt Date: 20100208
  Transmission Date: 20100710
  Serious: Yes (Hospitalization, Other)
  Sender: FDA-Public Use
  Company Number: CA-ABBOTT-10P-028-0625196-00

PATIENT
  Sex: Female

DRUGS (5)
  1. HUMIRA [Suspect]
     Indication: ANKYLOSING SPONDYLITIS
     Route: 058
     Dates: start: 20080828
  2. TYLENOL-500 [Concomitant]
     Indication: PAIN
     Dosage: 325 MG  Q 4-6 HRS
     Route: 048
  3. MOTRIN [Concomitant]
     Indication: PAIN
     Dosage: 200 MG Q 4 -6 HRS
     Route: 048
  4. ZOPICLONE [Concomitant]
     Indication: INSOMNIA
     Dosage: 7.5MG 2 TABS
     Route: 048
  5. PERCOCET [Concomitant]
     Indication: DRUG USE FOR UNKNOWN INDICATION
     Dosage: 5 MG /325 MG

REACTIONS (5)
  - ABDOMINAL PAIN LOWER [None]
  - ENDOMETRIOSIS [None]
  - INFECTION [None]
  - OVARIAN CYST [None]
  - OVARIAN CYST RUPTURED [None]
